FAERS Safety Report 18297282 (Version 1)
Quarter: 2020Q3

REPORT INFORMATION
  Report Type: Other
  Country: US (occurrence: US)
  Receive Date: 20200923
  Receipt Date: 20200923
  Transmission Date: 20201103
  Serious: Yes (Death)
  Sender: FDA-Public Use
  Company Number: US-ROCHE-2682772

PATIENT
  Sex: Male

DRUGS (2)
  1. RITUXAN [Suspect]
     Active Substance: RITUXIMAB
     Indication: B-CELL LYMPHOMA
     Route: 065
     Dates: start: 20180131
  2. RITUXAN [Suspect]
     Active Substance: RITUXIMAB
     Dosage: SUBSEQUENT DOSE ON 14/FEB/2018, 21/FEB/2018, 28/MAR/2018, 23/MAY/2018, 18/JUL/2018, 12/SEP/2018, 07/
     Route: 065
     Dates: start: 20180207

REACTIONS (1)
  - Death [Fatal]
